FAERS Safety Report 14234198 (Version 1)
Quarter: 2017Q4

REPORT INFORMATION
  Report Type: Report from Study
  Country: JO (occurrence: JO)
  Receive Date: 20171129
  Receipt Date: 20171129
  Transmission Date: 20180321
  Serious: Yes (Other)
  Sender: FDA-Public Use
  Company Number: PHHY2017JO158357

PATIENT
  Age: 54 Year
  Sex: Female

DRUGS (3)
  1. LEE011 [Suspect]
     Active Substance: RIBOCICLIB
     Indication: BREAST CANCER
     Dosage: 600 MG, QD
     Route: 048
     Dates: start: 201709, end: 20171023
  2. LEE011 [Suspect]
     Active Substance: RIBOCICLIB
     Dosage: 400 MG, QD
     Route: 048
     Dates: start: 201710, end: 201711
  3. LETROZOLE. [Suspect]
     Active Substance: LETROZOLE
     Indication: BREAST CANCER
     Route: 065

REACTIONS (1)
  - Neutropenia [Recovered/Resolved]

NARRATIVE: CASE EVENT DATE: 20171023
